FAERS Safety Report 13652117 (Version 1)
Quarter: 2017Q2

REPORT INFORMATION
  Report Type: Report from Study
  Country: MX (occurrence: MX)
  Receive Date: 20170614
  Receipt Date: 20170614
  Transmission Date: 20170830
  Serious: Yes (Hospitalization)
  Sender: FDA-Public Use
  Company Number: MX-AMGEN-MEXCT2011070060

PATIENT
  Age: 58 Year
  Sex: Female
  Weight: 60 kg

DRUGS (21)
  1. PLACEBO [Suspect]
     Active Substance: UNSPECIFIED INGREDIENT
     Indication: OVARIAN CANCER
     Dosage: UNK UNK, QWK
     Route: 042
     Dates: start: 20110726
  2. PACLITAXEL. [Concomitant]
     Active Substance: PACLITAXEL
     Route: 042
     Dates: start: 20111101, end: 20111101
  3. NAPROXEN. [Concomitant]
     Active Substance: NAPROXEN
     Dosage: 500 MG, UNK
     Route: 048
     Dates: start: 20111026, end: 20111031
  4. PACLITAXEL. [Concomitant]
     Active Substance: PACLITAXEL
     Dosage: 128 MG, QWK
     Route: 042
     Dates: start: 20110726, end: 20111213
  5. PACLITAXEL. [Concomitant]
     Active Substance: PACLITAXEL
     Route: 042
     Dates: start: 20111213, end: 20111213
  6. PACLITAXEL. [Concomitant]
     Active Substance: PACLITAXEL
     Route: 042
     Dates: start: 20110920, end: 20110920
  7. CHLORPHENIRAMINE. [Concomitant]
     Active Substance: CHLORPHENIRAMINE
     Dosage: UNK
     Route: 048
     Dates: start: 20110919, end: 20111122
  8. PACLITAXEL. [Concomitant]
     Active Substance: PACLITAXEL
     Route: 042
     Dates: start: 20111018, end: 20111018
  9. PACLITAXEL. [Concomitant]
     Active Substance: PACLITAXEL
     Route: 042
     Dates: start: 20111004, end: 20111004
  10. PACLITAXEL. [Concomitant]
     Active Substance: PACLITAXEL
     Route: 042
     Dates: start: 20111116, end: 20111116
  11. PACLITAXEL. [Concomitant]
     Active Substance: PACLITAXEL
     Route: 042
     Dates: start: 20111129, end: 20111129
  12. DEXAMETHASONE. [Concomitant]
     Active Substance: DEXAMETHASONE
     Dosage: 16 MG, UNK
     Route: 042
     Dates: start: 20110920, end: 20111213
  13. CHLORTRIMETON [Concomitant]
     Active Substance: CHLORPHENIRAMINE MALEATE
     Dosage: 4 MG, UNK
     Route: 048
     Dates: start: 20110919, end: 20111213
  14. PACLITAXEL. [Concomitant]
     Active Substance: PACLITAXEL
     Route: 042
     Dates: start: 20110927, end: 20110927
  15. PACLITAXEL. [Concomitant]
     Active Substance: PACLITAXEL
     Route: 042
     Dates: start: 20111122, end: 20111122
  16. RANITIDINE. [Concomitant]
     Active Substance: RANITIDINE
     Dosage: UNK
     Dates: start: 20110919, end: 20110920
  17. PREDNISONE. [Concomitant]
     Active Substance: PREDNISONE
     Dosage: 20 MG, UNK
     Route: 048
     Dates: start: 20110919, end: 20111213
  18. ONDANSETRON [Concomitant]
     Active Substance: ONDANSETRON
     Dosage: 8 MG, UNK
     Route: 042
     Dates: start: 20111116, end: 20111116
  19. PACLITAXEL. [Concomitant]
     Active Substance: PACLITAXEL
     Route: 042
     Dates: start: 20111025, end: 20111025
  20. KETOROLACO [Concomitant]
     Dosage: 10 MG, UNK
     Route: 048
     Dates: start: 20111025, end: 20111205
  21. 5 FLUOROURACIL [Concomitant]
     Active Substance: FLUOROURACIL
     Dosage: 500 MG, UNK
     Dates: start: 20111207, end: 20111207

REACTIONS (1)
  - Pleural effusion [Recovered/Resolved]

NARRATIVE: CASE EVENT DATE: 20111213
